FAERS Safety Report 9587824 (Version 1)
Quarter: 2013Q4

REPORT INFORMATION
  Report Type: Spontaneous
  Country: GB (occurrence: GB)
  Receive Date: 20131003
  Receipt Date: 20131003
  Transmission Date: 20140711
  Serious: Yes (Hospitalization, Other)
  Sender: FDA-Public Use
  Company Number: GB-BAXTER-2013BAX037946

PATIENT
  Age: 34 Year
  Sex: Male
  Weight: 63 kg

DRUGS (5)
  1. IFOSFAMIDE 40 MG/ML SOLUTION FOR INFUSION [Suspect]
     Indication: EWING^S SARCOMA
     Route: 042
     Dates: start: 20130318, end: 20130320
  2. DACTINOMYCIN [Suspect]
     Indication: EWING^S SARCOMA
     Route: 042
     Dates: start: 20130318, end: 20130320
  3. VINCRISTINE [Suspect]
     Indication: EWING^S SARCOMA
     Route: 042
     Dates: start: 20130318, end: 20130320
  4. MEPACT [Suspect]
     Indication: EWING^S SARCOMA
     Route: 065
     Dates: start: 20130213
  5. MEPACT [Suspect]
     Indication: OFF LABEL USE

REACTIONS (3)
  - Chills [Recovered/Resolved]
  - Syncope [Recovered/Resolved]
  - Presyncope [Recovered/Resolved]
